FAERS Safety Report 8016536-0 (Version None)
Quarter: 2011Q4

REPORT INFORMATION
  Report Type: 
  Country: None (occurrence: None)
  Receive Date: 20111230
  Receipt Date: 20111221
  Transmission Date: 20120403
  Serious: Yes (Hospitalization)
  Sender: FDA-Public Use
  Company Number: JP-MERCK-0811USA02228

PATIENT
  Age: 64 Year
  Sex: Male

DRUGS (11)
  1. CORTRIL [Concomitant]
     Route: 048
     Dates: start: 20081111, end: 20081112
  2. BIO THREE [Suspect]
     Indication: GASTRITIS
     Route: 048
     Dates: start: 20081111, end: 20081113
  3. PEPCID RPD [Suspect]
     Indication: GASTRITIS
     Route: 048
     Dates: start: 20081110, end: 20081112
  4. PEPCID RPD [Suspect]
     Indication: GASTROENTERITIS
     Route: 048
     Dates: start: 20081110, end: 20081112
  5. CORTRIL [Concomitant]
     Indication: ADRENAL DISORDER
     Route: 048
     Dates: start: 20081118
  6. CORTRIL [Concomitant]
     Route: 048
     Dates: start: 20081113, end: 20081117
  7. VITAMEDIN [Concomitant]
     Route: 042
     Dates: start: 20081106, end: 20081110
  8. BIO THREE [Suspect]
     Indication: GASTROENTERITIS
     Route: 048
     Dates: start: 20081111, end: 20081113
  9. TAGAMET [Concomitant]
     Indication: GASTRITIS
     Route: 042
     Dates: start: 20081107, end: 20081110
  10. TAGAMET [Concomitant]
     Indication: GASTROENTERITIS
     Route: 042
     Dates: start: 20081107, end: 20081110
  11. VITAMEDIN [Concomitant]
     Indication: HYPOVITAMINOSIS
     Route: 042
     Dates: start: 20081106, end: 20081110

REACTIONS (1)
  - RHABDOMYOLYSIS [None]
